FAERS Safety Report 8990239 (Version 1)
Quarter: 2012Q4

REPORT INFORMATION
  Report Type: 
  Country: DE (occurrence: DE)
  Receive Date: 20121228
  Receipt Date: 20121228
  Transmission Date: 20130627
  Serious: Yes (Hospitalization, Other)
  Sender: FDA-Public Use
  Company Number: DE-BRISTOL-MYERS SQUIBB COMPANY-17239500

PATIENT
  Age: 8 None
  Sex: Female

DRUGS (5)
  1. GLUCOPHAGE [Suspect]
     Indication: DIABETES MELLITUS
     Dosage: 2003-Unk
100mg:16oct12-Dec2012(2 month).
     Route: 048
     Dates: start: 2003, end: 201212
  2. METFORMIN HCL [Suspect]
     Route: 048
  3. INSULIN [Suspect]
     Indication: DIABETES MELLITUS
     Dates: start: 201212
  4. ASPIRIN PROTECT [Concomitant]
     Route: 048
  5. VITAMIN B [Concomitant]

REACTIONS (5)
  - Hypoglycaemia [Recovered/Resolved]
  - Speech disorder [Recovered/Resolved]
  - Hypertension [Recovered/Resolved]
  - Headache [Recovered/Resolved]
  - Glioblastoma multiforme [Unknown]
